FAERS Safety Report 5540390-X (Version None)
Quarter: 2007Q4

REPORT INFORMATION
  Report Type: 
  Country: None (occurrence: None)
  Receive Date: 20071129
  Receipt Date: 20070515
  Transmission Date: 20080405
  Serious: Yes (Other)
  Sender: FDA-Public Use
  Company Number: US200704006161

PATIENT
  Age: 27 Year
  Sex: Female

DRUGS (4)
  1. ZYPREXA [Suspect]
     Dosage: 5 MG, EACH EVENING, ORAL
     Route: 048
     Dates: start: 20070420
  2. TOPAMAX [Concomitant]
  3. DILANTIN [Concomitant]
  4. FLUOXETINE [Concomitant]

REACTIONS (4)
  - DIZZINESS [None]
  - PARTIAL SEIZURES [None]
  - TEMPERATURE INTOLERANCE [None]
  - VOMITING [None]
